FAERS Safety Report 9284558 (Version 4)
Quarter: 2013Q2

REPORT INFORMATION
  Report Type: Spontaneous
  Country: US (occurrence: US)
  Receive Date: 20130511
  Receipt Date: 20130613
  Transmission Date: 20140414
  Serious: Yes (Life-Threatening, Hospitalization, Disabling, Other)
  Sender: FDA-Public Use
  Company Number: US-009507513-1305USA003539

PATIENT
  Age: 60 Year
  Sex: Female
  Weight: 110.66 kg

DRUGS (8)
  1. JANUVIA [Suspect]
     Indication: DIABETES MELLITUS
     Dosage: 100 MG, QD
     Route: 048
     Dates: start: 20120726, end: 20130117
  2. LIPITOR [Concomitant]
  3. BENICAR [Concomitant]
  4. METFORMIN [Concomitant]
  5. ASPIRIN [Concomitant]
  6. DULERA [Concomitant]
     Indication: ASTHMA
  7. NORVASC [Concomitant]
  8. CHANTIX [Concomitant]

REACTIONS (10)
  - Lipase increased [Not Recovered/Not Resolved]
  - Pancreatitis [Unknown]
  - Cholecystectomy [Unknown]
  - Cholelithiasis [Recovered/Resolved]
  - Breast cancer [Unknown]
  - Drug dose omission [Unknown]
  - Breast tenderness [Unknown]
  - Hepatic steatosis [Unknown]
  - Osteoarthritis [Unknown]
  - Back pain [Unknown]
